FAERS Safety Report 9753633 (Version 2)
Quarter: 2014Q1

REPORT INFORMATION
  Report Type: Report from Study
  Country: US (occurrence: US)
  Receive Date: 20131213
  Receipt Date: 20140109
  Transmission Date: 20141002
  Serious: Yes (Hospitalization)
  Sender: FDA-Public Use
  Company Number: PHEH2013US025682

PATIENT
  Age: 23 Year
  Sex: Female

DRUGS (2)
  1. TOBI PODHALER [Suspect]
     Indication: CYSTIC FIBROSIS
     Dosage: 4 DF, BID
     Route: 055
     Dates: start: 20130919, end: 20131114
  2. TOBI PODHALER [Suspect]
     Dosage: 4 DF, BID
     Route: 055
     Dates: start: 20131119

REACTIONS (1)
  - Pancreatic disorder [Recovered/Resolved]
